FAERS Safety Report 4500753-8 (Version None)
Quarter: 2004Q4

REPORT INFORMATION
  Report Type: 
  Country: None (occurrence: None)
  Receive Date: 20041109
  Receipt Date: 20041027
  Transmission Date: 20050328
  Serious: Yes (Other)
  Sender: FDA-Public Use
  Company Number: USA041082445

PATIENT
  Age: 76 Year
  Sex: Male

DRUGS (14)
  1. HUMULIN R [Suspect]
     Dosage: 28 U
  2. RENAGEL [Concomitant]
  3. PROTONIX [Concomitant]
  4. METOPROLOL [Concomitant]
  5. PRAVACHOL [Concomitant]
  6. FLOMAX [Concomitant]
  7. PLAVIX [Concomitant]
  8. ASPIRIN [Concomitant]
  9. DUONEB [Concomitant]
  10. ADVAIR [Concomitant]
  11. FLOVENT [Concomitant]
  12. AMBIEN [Concomitant]
  13. LIDOCAINE [Concomitant]
  14. PRILOSEC (OMEPRAZOLE RATIOPHARM) [Concomitant]

REACTIONS (4)
  - CARDIAC DISORDER [None]
  - DIALYSIS [None]
  - RENAL CELL CARCINOMA STAGE UNSPECIFIED [None]
  - STENT PLACEMENT [None]
